FAERS Safety Report 17082565 (Version 2)
Quarter: 2019Q4

REPORT INFORMATION
  Report Type: Spontaneous
  Country: DE (occurrence: DE)
  Receive Date: 20191127
  Receipt Date: 20191129
  Transmission Date: 20200122
  Serious: No
  Sender: FDA-Public Use
  Company Number: DE-UCBSA-2019049025

PATIENT

DRUGS (1)
  1. VIMPAT [Suspect]
     Active Substance: LACOSAMIDE
     Indication: PRODUCT USED FOR UNKNOWN INDICATION
     Dosage: 50 MG

REACTIONS (10)
  - Depression [Unknown]
  - Confusional state [Unknown]
  - Seizure [Recovered/Resolved]
  - Muscle twitching [Unknown]
  - Nervousness [Unknown]
  - Restless legs syndrome [Unknown]
  - Autism spectrum disorder [Unknown]
  - Muscle spasms [Unknown]
  - Panic attack [Recovered/Resolved]
  - Disorientation [Unknown]
